FAERS Safety Report 6847364-7 (Version None)
Quarter: 2010Q3

REPORT INFORMATION
  Report Type: 
  Country: None (occurrence: None)
  Receive Date: 20100716
  Receipt Date: 20100707
  Transmission Date: 20110219
  Serious: Yes (Other)
  Sender: FDA-Public Use
  Company Number: US-JNJFOC-20100702640

PATIENT
  Sex: Female
  Weight: 88.45 kg

DRUGS (4)
  1. REMICADE [Suspect]
     Indication: CROHN'S DISEASE
     Route: 042
  2. LISINOPRIL [Concomitant]
     Indication: HYPERTENSION
  3. ESTRADIOL [Concomitant]
     Indication: MENOPAUSE
  4. NOREPHEDRINE HYDROCHLORIDE [Concomitant]
     Indication: HOT FLUSH

REACTIONS (1)
  - RENAL FAILURE [None]
